FAERS Safety Report 9801756 (Version 1)
Quarter: 2014Q1

REPORT INFORMATION
  Report Type: Spontaneous
  Country: US (occurrence: US)
  Receive Date: 20140107
  Receipt Date: 20140107
  Transmission Date: 20141002
  Serious: Yes (Other)
  Sender: FDA-Public Use
  Company Number: US-GLAXOSMITHKLINE-A1054922A

PATIENT
  Age: 49 Year
  Sex: Male

DRUGS (8)
  1. ADVAIR [Suspect]
     Indication: DYSPNOEA
     Dosage: 1PUFF SINGLE DOSE
     Route: 055
     Dates: start: 20131230
  2. METFORMIN [Concomitant]
  3. GLIPIZIDE [Concomitant]
  4. ENALAPRIL [Concomitant]
  5. LIPITOR [Concomitant]
  6. ALBUTEROL [Concomitant]
  7. HCTZ [Concomitant]
  8. ACTOS [Concomitant]

REACTIONS (6)
  - Cardiac flutter [Unknown]
  - Nervousness [Unknown]
  - Sensory disturbance [Unknown]
  - Feeling abnormal [Unknown]
  - Dyspnoea [Unknown]
  - Off label use [Unknown]
